FAERS Safety Report 6078015-X (Version None)
Quarter: 2009Q1

REPORT INFORMATION
  Report Type: 
  Country: None (occurrence: None)
  Receive Date: 20090213
  Receipt Date: 20090205
  Transmission Date: 20090719
  Serious: Yes (Hospitalization, Other)
  Sender: FDA-Public Use
  Company Number: PT-PFIZER INC-2008087537

PATIENT

DRUGS (3)
  1. LYRICA [Suspect]
     Indication: SCIATICA
     Dosage: 75 MG, UNK
     Route: 048
  2. REUMON [Concomitant]
     Route: 030
  3. ANALGESICS [Concomitant]

REACTIONS (3)
  - FACE OEDEMA [None]
  - MULTIPLE MYELOMA [None]
  - NEOPLASM MALIGNANT [None]
